FAERS Safety Report 13950098 (Version 14)
Quarter: 2018Q4

REPORT INFORMATION
  Report Type: Report from Study
  Country: DE (occurrence: DE)
  Receive Date: 20170908
  Receipt Date: 20181130
  Transmission Date: 20190204
  Serious: Yes (Death, Hospitalization, Other)
  Sender: FDA-Public Use
  Company Number: DE-GILEAD-2017-0292277

PATIENT
  Age: 70 Year
  Sex: Male
  Weight: 97 kg

DRUGS (9)
  1. CIPROFLOXACIN. [Concomitant]
     Active Substance: CIPROFLOXACIN
     Indication: PROPHYLAXIS
     Dosage: 500 MG, BID
     Route: 048
     Dates: start: 20170830, end: 20170903
  2. RITUXIMAB. [Concomitant]
     Active Substance: RITUXIMAB
     Indication: CHRONIC LYMPHOCYTIC LEUKAEMIA
     Dosage: UNK
     Dates: start: 20170717
  3. MARCUMAR [Concomitant]
     Active Substance: PHENPROCOUMON
     Indication: PROPHYLAXIS
     Dosage: UNK
     Dates: start: 20090901, end: 20170830
  4. PANTOPRAZOL [Concomitant]
     Active Substance: PANTOPRAZOLE SODIUM
     Indication: PROPHYLAXIS
     Dosage: UNK
     Dates: start: 20170726
  5. IDELALISIB [Suspect]
     Active Substance: IDELALISIB
     Indication: CHRONIC LYMPHOCYTIC LEUKAEMIA
     Dosage: 300 MG, QD
     Route: 048
     Dates: start: 20170715, end: 20170830
  6. COTRIM [Concomitant]
     Active Substance: SULFAMETHOXAZOLE\TRIMETHOPRIM
     Indication: PROPHYLAXIS
     Dosage: UNK
     Dates: start: 20170726
  7. IBUPROFEN. [Concomitant]
     Active Substance: IBUPROFEN
     Dosage: UNK
  8. NIVESTIM [Concomitant]
     Active Substance: FILGRASTIM
     Indication: CHRONIC LYMPHOCYTIC LEUKAEMIA
     Dosage: 48 ML, QD
     Route: 058
     Dates: start: 20170830, end: 20170903
  9. IBUPROFEN. [Concomitant]
     Active Substance: IBUPROFEN
     Indication: BACK PAIN
     Dosage: UNK
     Dates: start: 20170725, end: 20170829

REACTIONS (4)
  - Neutrophil count decreased [Fatal]
  - Multiple organ dysfunction syndrome [Fatal]
  - Urinary tract infection [Fatal]
  - Back pain [Unknown]

NARRATIVE: CASE EVENT DATE: 20170725
